FAERS Safety Report 7206262-X (Version None)
Quarter: 2011Q1

REPORT INFORMATION
  Report Type: 
  Country: None (occurrence: None)
  Receive Date: 20110103
  Receipt Date: 20101221
  Transmission Date: 20110831
  Serious: Yes (Other)
  Sender: FDA-Public Use
  Company Number: PHHY2010US83332

PATIENT
  Sex: Female
  Weight: 126 kg

DRUGS (7)
  1. ZYRTEC [Concomitant]
     Dosage: 10 MG,1 TABLET
     Route: 048
  2. X-CLEAR NASAL SPRAY [Concomitant]
     Dosage: 2 SPRAY ONCE DAILY
     Route: 045
  3. BENADRYL ^ACHE^ [Concomitant]
     Dosage: 25 MG AS NEEDED
     Route: 048
  4. ELIDEL [Suspect]
     Indication: ECZEMA EYELIDS
  5. ELIDEL [Suspect]
     Indication: DERMATITIS ATOPIC
     Dosage: TWICE DAILY
     Route: 061
     Dates: start: 20101109, end: 20101111
  6. PANTHENOL [Concomitant]
     Indication: HYPERSENSITIVITY
     Dosage: UNK
  7. VISINE EYE DROPS [Concomitant]

REACTIONS (5)
  - APPLICATION SITE SWELLING [None]
  - APPLICATION SITE ERYTHEMA [None]
  - APPLICATION SITE EXFOLIATION [None]
  - APPLICATION SITE BLEEDING [None]
  - APPLICATION SITE IRRITATION [None]
